FAERS Safety Report 6945971-4 (Version None)
Quarter: 2010Q3

REPORT INFORMATION
  Report Type: 
  Country: None (occurrence: None)
  Receive Date: 20100827
  Receipt Date: 20100825
  Transmission Date: 20110219
  Serious: Yes (Other)
  Sender: FDA-Public Use
  Company Number: US-CEPHALON-2010004397

PATIENT
  Sex: Male
  Weight: 90 kg

DRUGS (9)
  1. TREANDA [Suspect]
     Indication: CHRONIC LYMPHOCYTIC LEUKAEMIA
     Route: 042
     Dates: start: 20100602
  2. TREANDA [Suspect]
     Route: 042
     Dates: start: 20100708
  3. IMMUNE GLOBULIN INTRAVENOUS (HUMAN) [Concomitant]
     Indication: HEPATIC INFECTION
  4. ACYCLOVIR SODIUM [Concomitant]
     Indication: PROPHYLAXIS
  5. ASPIRIN [Concomitant]
  6. GLUCOSAMINE [Concomitant]
  7. LOPRESSOR [Concomitant]
     Indication: HYPERTENSION
  8. MULTI-VITAMIN [Concomitant]
     Indication: SUPPLEMENTATION THERAPY
  9. PHENERGAN [Concomitant]
     Indication: NAUSEA

REACTIONS (1)
  - PANCYTOPENIA [None]
